FAERS Safety Report 16034592 (Version 4)
Quarter: 2019Q2

REPORT INFORMATION
  Report Type: Spontaneous
  Country: US (occurrence: US)
  Receive Date: 20190305
  Receipt Date: 20190606
  Transmission Date: 20190711
  Serious: Yes (Other)
  Sender: FDA-Public Use
  Company Number: US-PFIZER INC-2019092501

PATIENT
  Age: 63 Year
  Sex: Female

DRUGS (1)
  1. IBRANCE [Suspect]
     Active Substance: PALBOCICLIB
     Dosage: UNK

REACTIONS (7)
  - Dysstasia [Unknown]
  - Fatigue [Unknown]
  - Head discomfort [Unknown]
  - Mental impairment [Unknown]
  - Pain [Unknown]
  - Emotional disorder [Unknown]
  - Back disorder [Unknown]
